FAERS Safety Report 20377769 (Version 2)
Quarter: 2022Q1

REPORT INFORMATION
  Report Type: Other
  Country: US (occurrence: None)
  Receive Date: 20220126
  Receipt Date: 20220211
  Transmission Date: 20220423
  Serious: Yes (Hospitalization)
  Sender: FDA-Public Use
  Company Number: US-ROCHE-3002443

PATIENT
  Sex: Male

DRUGS (2)
  1. OCREVUS [Suspect]
     Active Substance: OCRELIZUMAB
     Indication: Relapsing multiple sclerosis
     Dosage: 300 MG ON DAY 1 AND DAY 15 THEN 600 MG EVERY 6 MONTHS; DATE OF TREATMENT: 17/AUG/2020, 01/FEB/2021 A
     Route: 065
     Dates: start: 20200802
  2. REBIF [Concomitant]
     Active Substance: INTERFERON BETA-1A

REACTIONS (2)
  - COVID-19 [Unknown]
  - Pneumonia [Unknown]
